FAERS Safety Report 9147395 (Version 2)
Quarter: 2013Q2

REPORT INFORMATION
  Report Type: Spontaneous
  Country: FR (occurrence: FR)
  Receive Date: 20130307
  Receipt Date: 20130405
  Transmission Date: 20140414
  Serious: Yes (Other)
  Sender: FDA-Public Use
  Company Number: FR-GLAXOSMITHKLINE-B0871054A

PATIENT
  Age: 73 Year
  Sex: Male

DRUGS (4)
  1. LAMICTAL [Suspect]
     Indication: EPILEPSY
     Route: 048
     Dates: start: 201301
  2. KEPPRA [Suspect]
     Indication: EPILEPSY
     Dosage: 500MG TWICE PER DAY
     Route: 048
     Dates: start: 2010
  3. URBANYL [Concomitant]
     Indication: EPILEPSY
     Dosage: 20MG PER DAY
     Route: 048
     Dates: start: 2011, end: 201211
  4. RISPERIDONE [Concomitant]
     Indication: DEPRESSION
     Route: 065
     Dates: start: 201207

REACTIONS (14)
  - Irritability [Recovering/Resolving]
  - Aggression [Recovering/Resolving]
  - Thinking abnormal [Recovering/Resolving]
  - Abnormal behaviour [Recovering/Resolving]
  - Pre-existing disease [Recovering/Resolving]
  - Accident [None]
  - Gun shot wound [None]
  - Depression [None]
  - Suicide attempt [None]
  - Apathy [None]
  - Condition aggravated [None]
  - Asthenia [None]
  - Confusional state [None]
  - Morbid thoughts [None]
